FAERS Safety Report 24080824 (Version 1)
Quarter: 2024Q3

REPORT INFORMATION
  Report Type: Report from Study
  Country: BD (occurrence: BD)
  Receive Date: 20240711
  Receipt Date: 20240711
  Transmission Date: 20241016
  Serious: Yes (Death)
  Sender: SANDOZ
  Company Number: BD-002147023-NVSC2024BD138844

PATIENT
  Age: 80 Year
  Sex: Female
  Weight: 56 kg

DRUGS (1)
  1. ACLASTA [Suspect]
     Active Substance: ZOLEDRONIC ACID
     Indication: Osteoporosis
     Dosage: 5MG/100ML, ONCE IN A YEAR
     Route: 042
     Dates: start: 202207, end: 2023

REACTIONS (1)
  - Ulcer [Fatal]

NARRATIVE: CASE EVENT DATE: 20231230
